FAERS Safety Report 14652402 (Version 1)
Quarter: 2018Q1

REPORT INFORMATION
  Report Type: Spontaneous
  Country: US (occurrence: US)
  Receive Date: 20180318
  Receipt Date: 20180318
  Transmission Date: 20180509
  Serious: No
  Sender: FDA-Public Use
  Company Number: US-FDC LIMITED-2017RIS00062

PATIENT
  Age: 70 Year
  Sex: Female
  Weight: 68.27 kg

DRUGS (4)
  1. VITAMIC C [Concomitant]
  2. OFLOXACIN. [Suspect]
     Active Substance: OFLOXACIN
     Indication: SUPERFICIAL INJURY OF EYE
     Dosage: 1 DROP LEFT EYE, 4X/DAY
     Route: 047
     Dates: start: 20170310, end: 20170311
  3. OMEGA-3 ACIDS [Concomitant]
     Active Substance: OMEGA-3 FATTY ACIDS
  4. VITAMIN D3 [Concomitant]
     Active Substance: CHOLECALCIFEROL

REACTIONS (3)
  - Eye inflammation [Unknown]
  - Ocular hyperaemia [Recovered/Resolved]
  - Insomnia [Unknown]

NARRATIVE: CASE EVENT DATE: 20170311
